FAERS Safety Report 22207444 (Version 2)
Quarter: 2023Q2

REPORT INFORMATION
  Report Type: Spontaneous
  Country: US (occurrence: US)
  Receive Date: 20230413
  Receipt Date: 20230522
  Transmission Date: 20230721
  Serious: Yes (Other)
  Sender: FDA-Public Use
  Company Number: US-PFIZER INC-202300149989

PATIENT
  Age: 82 Year
  Sex: Female

DRUGS (1)
  1. PAXLOVID [Suspect]
     Active Substance: NIRMATRELVIR\RITONAVIR
     Indication: COVID-19 treatment
     Dosage: 3 DF, 2X/DAY (2 NIRMATRELVIR AND 1 RITONAVIR TWICE DAILY FOR 5 DAY)
     Route: 048
     Dates: start: 20230407, end: 20230410

REACTIONS (3)
  - Dizziness [Unknown]
  - Hypoaesthesia [Recovered/Resolved]
  - Blood pressure increased [Unknown]

NARRATIVE: CASE EVENT DATE: 20230410
